FAERS Safety Report 7106090-X (Version None)
Quarter: 2010Q4

REPORT INFORMATION
  Report Type: 
  Country: None (occurrence: None)
  Receive Date: 20101116
  Receipt Date: 20101105
  Transmission Date: 20110411
  Serious: Yes (Hospitalization, Disabling, Other)
  Sender: FDA-Public Use
  Company Number: IT-MERCK-1003ITA00013

PATIENT
  Age: 44 Year
  Sex: Female
  Weight: 66 kg

DRUGS (6)
  1. FOSAMAX [Suspect]
     Indication: RHEUMATOID ARTHRITIS
     Route: 048
     Dates: start: 20020501
  2. LEFLUNOMIDE [Concomitant]
     Route: 065
  3. METHYLPREDNISOLONE [Concomitant]
     Route: 065
  4. HYDROXYCHLOROQUINE SULFATE [Concomitant]
     Route: 065
  5. ATENOLOL [Concomitant]
     Route: 065
  6. CALCIUM CARBONATE AND CHOLECALCIFEROL [Concomitant]
     Route: 048
     Dates: start: 20020501

REACTIONS (10)
  - BONE FISSURE [None]
  - HEADACHE [None]
  - IMPAIRED HEALING [None]
  - JAW FRACTURE [None]
  - OFF LABEL USE [None]
  - OSTEONECROSIS OF JAW [None]
  - PAIN [None]
  - RESPIRATORY DISORDER [None]
  - SINUSITIS [None]
  - TOOTH DISORDER [None]
